FAERS Safety Report 14328224 (Version 1)
Quarter: 2017Q4

REPORT INFORMATION
  Report Type: Spontaneous
  Country: US (occurrence: US)
  Receive Date: 20171227
  Receipt Date: 20171227
  Transmission Date: 20180321
  Serious: Yes (Hospitalization, Other)
  Sender: FDA-Public Use
  Company Number: US-BIOVITRUM-2017US1134

PATIENT
  Age: 74 Year
  Sex: Male
  Weight: 100.3 kg

DRUGS (12)
  1. KINERET [Suspect]
     Active Substance: ANAKINRA
     Indication: PLASMA CELL MYELOMA
     Route: 058
     Dates: start: 20171003, end: 20171120
  2. DECADRON [Concomitant]
     Active Substance: DEXAMETHASONE
  3. VITAMIN D3 [Concomitant]
     Active Substance: CHOLECALCIFEROL
  4. AVODART [Concomitant]
     Active Substance: DUTASTERIDE
  5. ZIAC [Concomitant]
     Active Substance: BISOPROLOL FUMARATE\HYDROCHLOROTHIAZIDE
  6. NEXIUM [Concomitant]
     Active Substance: ESOMEPRAZOLE MAGNESIUM
  7. REVLIMID [Concomitant]
     Active Substance: LENALIDOMIDE
  8. LENALIDOMIDE [Suspect]
     Active Substance: LENALIDOMIDE
     Route: 048
  9. TRICOR [Concomitant]
     Active Substance: FENOFIBRATE
  10. CENTRUM [Concomitant]
     Active Substance: VITAMINS
  11. ASPIRIN. [Concomitant]
     Active Substance: ASPIRIN
  12. PRAVACHOL [Concomitant]
     Active Substance: PRAVASTATIN SODIUM

REACTIONS (2)
  - Pulmonary embolism [Recovering/Resolving]
  - Pulmonary mass [Unknown]

NARRATIVE: CASE EVENT DATE: 20171123
